FAERS Safety Report 6317598-9 (Version None)
Quarter: 2009Q3

REPORT INFORMATION
  Report Type: 
  Country: None (occurrence: None)
  Receive Date: 20090821
  Receipt Date: 20090816
  Transmission Date: 20100115
  Serious: No
  Sender: FDA-Public Use
  Company Number: US-B.I. PHARMACEUTICALS,INC./RIDGEFIELD-2009-BP-09722BP

PATIENT
  Sex: Female

DRUGS (7)
  1. FLOMAX [Suspect]
     Indication: MICTURITION DISORDER
     Dosage: 0.4 MG
     Route: 048
     Dates: start: 20090813, end: 20090815
  2. REYATAZ [Concomitant]
     Indication: HIV INFECTION
  3. EPZICOM [Concomitant]
     Indication: HIV INFECTION
  4. HALDOL [Concomitant]
     Indication: HALLUCINATION, AUDITORY
  5. COGENTIN [Concomitant]
     Indication: ADVERSE DRUG REACTION
     Dosage: 6 MG
  6. DEPAKOTE [Concomitant]
     Indication: IMPULSE-CONTROL DISORDER
  7. METFORMIN HCL [Concomitant]
     Indication: METABOLIC DISORDER

REACTIONS (3)
  - DROOLING [None]
  - DYSKINESIA [None]
  - TRISMUS [None]
